FAERS Safety Report 6674323-X (Version None)
Quarter: 2010Q2

REPORT INFORMATION
  Report Type: 
  Country: None (occurrence: None)
  Receive Date: 20100409
  Receipt Date: 20100406
  Transmission Date: 20101027
  Serious: Yes (Life-Threatening, Hospitalization, Other)
  Sender: FDA-Public Use
  Company Number: GB-NOVOPROD-306651

PATIENT

DRUGS (2)
  1. LEVEMIR [Suspect]
     Indication: DIABETES MELLITUS
     Route: 064
  2. NOVORAPID [Suspect]
     Indication: DIABETES MELLITUS
     Route: 064

REACTIONS (2)
  - APPARENT DEATH [None]
  - DRUG EXPOSURE DURING PREGNANCY [None]
